FAERS Safety Report 7385279-9 (Version None)
Quarter: 2011Q1

REPORT INFORMATION
  Report Type: 
  Country: None (occurrence: None)
  Receive Date: 20110330
  Receipt Date: 20100521
  Transmission Date: 20110831
  Serious: No
  Sender: FDA-Public Use
  Company Number: US-MYLANLABS-2010S1004924

PATIENT
  Age: 58 Year
  Sex: Female
  Weight: 63.5 kg

DRUGS (5)
  1. PRILOSEC [Concomitant]
  2. KLONOPIN [Concomitant]
  3. EMSAM [Suspect]
     Dosage: ONLY WORN FOR 4 HOURS DAILY
     Route: 062
     Dates: start: 20100101
  4. MIRAPEX [Concomitant]
  5. EMSAM [Suspect]
     Indication: BIPOLAR I DISORDER
     Dosage: Q24H
     Route: 062
     Dates: start: 20090911, end: 20100108

REACTIONS (4)
  - BIPOLAR DISORDER [None]
  - EUPHORIC MOOD [None]
  - HYPOMANIA [None]
  - INSOMNIA [None]
